FAERS Safety Report 5281976-X (Version None)
Quarter: 2007Q1

REPORT INFORMATION
  Report Type: 
  Country: None (occurrence: None)
  Receive Date: 20070326
  Receipt Date: 20070315
  Transmission Date: 20070707
  Serious: Yes (Disabling)
  Sender: FDA-Public Use
  Company Number: GXKR2007NO02655

PATIENT
  Age: 36 Year
  Sex: Female

DRUGS (3)
  1. OMEPRAZOLE (NGX)(OMEPRAZOLE) UNKNKOWN [Suspect]
     Indication: HELICOBACTER GASTRITIS
     Dosage: 40 MG, QD, ORAL
     Route: 048
     Dates: start: 20060929, end: 20061001
  2. AMOXICILLIN [Concomitant]
  3. KLACID (CLARITHROMYCIN LACTOBIONATE) [Concomitant]

REACTIONS (2)
  - BENIGN INTRACRANIAL HYPERTENSION [None]
  - DISEASE RECURRENCE [None]
